FAERS Safety Report 24276211 (Version 1)
Quarter: 2024Q3

REPORT INFORMATION
  Report Type: Spontaneous
  Country: CN (occurrence: CN)
  Receive Date: 20240903
  Receipt Date: 20240903
  Transmission Date: 20241016
  Serious: Yes (Life-Threatening, Hospitalization, Other)
  Sender: EPIC PHARM
  Company Number: CN-EPICPHARMA-CN-2024EPCLIT01046

PATIENT
  Age: 53 Year
  Sex: Female

DRUGS (12)
  1. RIFAMPIN [Suspect]
     Active Substance: RIFAMPIN
     Indication: Pulmonary tuberculosis
     Route: 042
     Dates: start: 20230913
  2. RIFAMPIN [Suspect]
     Active Substance: RIFAMPIN
     Indication: Renal tuberculosis
  3. ISONIAZID [Concomitant]
     Active Substance: ISONIAZID
     Route: 065
     Dates: start: 20230913
  4. ISONIAZID [Concomitant]
     Active Substance: ISONIAZID
  5. ETHAMBUTOL [Concomitant]
     Active Substance: ETHAMBUTOL HYDROCHLORIDE
     Route: 065
     Dates: start: 20230913
  6. ETHAMBUTOL [Concomitant]
     Active Substance: ETHAMBUTOL HYDROCHLORIDE
  7. PYRAZINAMIDE [Concomitant]
     Active Substance: PYRAZINAMIDE
     Route: 065
     Dates: start: 20230913
  8. PYRAZINAMIDE [Concomitant]
     Active Substance: PYRAZINAMIDE
  9. LEVOTHYROXINE [Concomitant]
     Active Substance: LEVOTHYROXINE\LEVOTHYROXINE SODIUM
     Indication: Hypothyroidism
     Route: 065
  10. LEVOFLOXACIN [Concomitant]
     Active Substance: LEVOFLOXACIN
     Route: 065
  11. MOXIFLOXACIN [Concomitant]
     Active Substance: MOXIFLOXACIN
     Indication: Product used for unknown indication
     Route: 065
  12. NOREPINEPHRINE [Concomitant]
     Active Substance: NOREPINEPHRINE\NOREPINEPHRINE BITARTRATE
     Indication: Product used for unknown indication
     Route: 042

REACTIONS (1)
  - Haemophagocytic lymphohistiocytosis [Recovered/Resolved]
